FAERS Safety Report 6566808-1 (Version None)
Quarter: 2010Q1

REPORT INFORMATION
  Report Type: 
  Country: None (occurrence: None)
  Receive Date: 20100127
  Receipt Date: 20100115
  Transmission Date: 20100710
  Serious: Yes (Other)
  Sender: FDA-Public Use
  Company Number: 236067K09USA

PATIENT
  Age: 38 Year
  Sex: Male

DRUGS (4)
  1. REBIF [Suspect]
     Indication: MULTIPLE SCLEROSIS
     Dosage: 44 MCG, 3 IN 1 WEEKS, SUBCUTANEOUS
     Route: 058
     Dates: start: 20090113
  2. CELEXA [Concomitant]
  3. LEXAPRO [Concomitant]
  4. TYLENOL [Concomitant]

REACTIONS (4)
  - DEPRESSION [None]
  - NEOPLASM [None]
  - OCULAR SARCOIDOSIS [None]
  - TENDERNESS [None]
